FAERS Safety Report 5236413-8 (Version None)
Quarter: 2007Q1

REPORT INFORMATION
  Report Type: 
  Country: None (occurrence: None)
  Receive Date: 20070212
  Receipt Date: 20070201
  Transmission Date: 20070707
  Serious: Yes (Other)
  Sender: FDA-Public Use
  Company Number: FR-PFIZER INC-2007009330

PATIENT
  Sex: Female

DRUGS (4)
  1. LYRICA [Suspect]
     Indication: NEURALGIA
  2. IRBESARTAN [Concomitant]
  3. LEVOTHYROXINE SODIUM [Concomitant]
  4. GINKGO BILOBA [Concomitant]

REACTIONS (7)
  - DISTURBANCE IN ATTENTION [None]
  - DRUG INEFFECTIVE [None]
  - GAIT DISTURBANCE [None]
  - NAUSEA [None]
  - PALPITATIONS [None]
  - VERTIGO [None]
  - VISUAL DISTURBANCE [None]
